FAERS Safety Report 5961066-0 (Version None)
Quarter: 2008Q4

REPORT INFORMATION
  Report Type: 
  Country: None (occurrence: None)
  Receive Date: 20081119
  Receipt Date: 20081107
  Transmission Date: 20090506
  Serious: Yes (Life-Threatening)
  Sender: FDA-Public Use
  Company Number: GXKR2008IT10668

PATIENT
  Sex: Female

DRUGS (1)
  1. LORAZEPAM [Suspect]

REACTIONS (3)
  - HYPOAESTHESIA [None]
  - TEMPERATURE INTOLERANCE [None]
  - VESTIBULAR DISORDER [None]
